FAERS Safety Report 16030259 (Version 1)
Quarter: 2019Q2

REPORT INFORMATION
  Report Type: Spontaneous
  Country: US (occurrence: US)
  Receive Date: 20190304
  Receipt Date: 20190304
  Transmission Date: 20190711
  Serious: Yes (Disabling, Other)
  Sender: FDA-Public Use
  Company Number: None

PATIENT
  Age: 47 Year
  Sex: Female
  Weight: 120.6 kg

DRUGS (1)
  1. LEVAQUIN [Suspect]
     Active Substance: LEVOFLOXACIN

REACTIONS (5)
  - Gingival swelling [None]
  - Arthralgia [None]
  - Oral mucosal blistering [None]
  - Heart rate irregular [None]
  - Tendon pain [None]

NARRATIVE: CASE EVENT DATE: 20190207
